FAERS Safety Report 11647562 (Version 4)
Quarter: 2015Q4

REPORT INFORMATION
  Report Type: Report from Study
  Country: CA (occurrence: CA)
  Receive Date: 20151021
  Receipt Date: 20151119
  Transmission Date: 20160304
  Serious: Yes (Other)
  Sender: FDA-Public Use
  Company Number: CA-ROCHE-1544713

PATIENT
  Age: 47 Year
  Sex: Female

DRUGS (3)
  1. METHOTREXATE [Concomitant]
     Active Substance: METHOTREXATE
     Indication: RHEUMATOID ARTHRITIS
     Route: 048
     Dates: start: 20110131
  2. ACTEMRA [Suspect]
     Active Substance: TOCILIZUMAB
     Indication: RHEUMATOID ARTHRITIS
     Route: 058
     Dates: start: 20150217, end: 2015
  3. FOLIC ACID. [Concomitant]
     Active Substance: FOLIC ACID
     Indication: RHEUMATOID ARTHRITIS
     Route: 048
     Dates: start: 20110131

REACTIONS (21)
  - Parosmia [Not Recovered/Not Resolved]
  - Hypercholesterolaemia [Unknown]
  - Weight increased [Unknown]
  - Renal cyst [Unknown]
  - Drug effect decreased [Unknown]
  - Joint swelling [Unknown]
  - Fatigue [Recovered/Resolved]
  - Nausea [Recovered/Resolved]
  - Sinus congestion [Unknown]
  - Injection site bruising [Unknown]
  - Arthralgia [Unknown]
  - Hot flush [Unknown]
  - Dizziness [Recovered/Resolved]
  - Bronchitis [Recovering/Resolving]
  - Pain [Unknown]
  - Pyrexia [Not Recovered/Not Resolved]
  - Chest discomfort [Not Recovered/Not Resolved]
  - Treatment failure [Unknown]
  - Hepatic steatosis [Unknown]
  - Musculoskeletal stiffness [Unknown]
  - Cough [Not Recovered/Not Resolved]

NARRATIVE: CASE EVENT DATE: 20150217
